FAERS Safety Report 6810595-6 (Version None)
Quarter: 2010Q2

REPORT INFORMATION
  Report Type: 
  Country: None (occurrence: None)
  Receive Date: 20100630
  Receipt Date: 20100625
  Transmission Date: 20101027
  Serious: Yes (Death)
  Sender: FDA-Public Use
  Company Number: US-CELGENEUS-163-20785-10062822

PATIENT
  Sex: Male

DRUGS (1)
  1. THALOMID [Suspect]
     Route: 048
     Dates: start: 20100601, end: 20100601

REACTIONS (1)
  - RESPIRATORY ARREST [None]
